FAERS Safety Report 22317534 (Version 1)
Quarter: 2023Q2

REPORT INFORMATION
  Report Type: Spontaneous
  Country: AR (occurrence: AR)
  Receive Date: 20230515
  Receipt Date: 20230515
  Transmission Date: 20230721
  Serious: Yes (Other)
  Sender: FDA-Public Use
  Company Number: AR-002147023-NVSC2023AR108167

PATIENT
  Sex: Female

DRUGS (7)
  1. TACROLIMUS [Suspect]
     Active Substance: TACROLIMUS
     Indication: Renal and pancreas transplant
     Dosage: UNK
     Route: 065
  2. AZATHIOPRINE [Suspect]
     Active Substance: AZATHIOPRINE
     Indication: Renal and pancreas transplant
     Dosage: UNK
     Route: 065
  3. PREDNISOLONE [Suspect]
     Active Substance: PREDNISOLONE
     Indication: Renal and pancreas transplant
     Dosage: UNK (LOW-DOSE)
     Route: 065
  4. IRON [Suspect]
     Active Substance: IRON
     Indication: Supplementation therapy
     Dosage: UNK
     Route: 065
  5. IRON [Suspect]
     Active Substance: IRON
     Indication: Anaemia
  6. THROMBOPOIETIN [Suspect]
     Active Substance: THROMBOPOIETIN
     Indication: Anaemia
     Dosage: UNK
     Route: 065
  7. THROMBOPOIETIN [Suspect]
     Active Substance: THROMBOPOIETIN
     Dosage: 8000 U, QW (INCRESED DOSE)
     Route: 065

REACTIONS (3)
  - Preterm premature rupture of membranes [Unknown]
  - Delivery [Unknown]
  - Maternal exposure during pregnancy [Unknown]
